FAERS Safety Report 24769627 (Version 3)
Quarter: 2025Q4

REPORT INFORMATION
  Report Type: Spontaneous
  Country: EU (occurrence: EU)
  Receive Date: 20241224
  Receipt Date: 20251218
  Transmission Date: 20260117
  Serious: Yes (Hospitalization, Other)
  Sender: Kenvue
  Company Number: EU-002147023-PHHY2019DE071769

PATIENT

DRUGS (11)
  1. IBUPROFEN [Suspect]
     Active Substance: IBUPROFEN
     Indication: Product used for unknown indication
     Dosage: 1200 MG
     Route: 065
  2. IBUPROFEN [Suspect]
     Active Substance: IBUPROFEN
     Dosage: 1800 MG (600 MG)
     Route: 065
  3. IBUPROFEN [Suspect]
     Active Substance: IBUPROFEN
     Dosage: 600 MILLIGRAM
     Route: 065
  4. IBUPROFEN [Suspect]
     Active Substance: IBUPROFEN
     Dosage: 1200 MG
     Route: 065
  5. COSENTYX [Suspect]
     Active Substance: SECUKINUMAB
     Indication: Psoriatic arthropathy
     Dosage: 300 MG, Q4W
  6. COSENTYX [Suspect]
     Active Substance: SECUKINUMAB
     Dosage: 300 MG
  7. COSENTYX [Suspect]
     Active Substance: SECUKINUMAB
     Dosage: 150 MILLIGRAM
     Route: 065
  8. ACEMETACIN [Concomitant]
     Active Substance: ACEMETACIN
     Indication: Product used for unknown indication
     Dosage: 60 MG
     Route: 065
  9. ACEMETACIN [Concomitant]
     Active Substance: ACEMETACIN
     Dosage: 120 MG
     Route: 065
  10. ACEMETACIN [Concomitant]
     Active Substance: ACEMETACIN
     Dosage: 60 MG
     Route: 065
  11. ACEMETACIN [Concomitant]
     Active Substance: ACEMETACIN
     Dosage: 120 MG
     Route: 065

REACTIONS (18)
  - Meniscus injury [Not Recovered/Not Resolved]
  - Spinal osteoarthritis [Unknown]
  - Alcoholism [Recovered/Resolved]
  - Polyneuropathy [Unknown]
  - Alcohol abuse [Unknown]
  - Alcohol poisoning [Unknown]
  - Suicidal ideation [Unknown]
  - Alcoholism [Recovered/Resolved]
  - Depression [Recovered/Resolved]
  - Intervertebral disc protrusion [Unknown]
  - Influenza like illness [Unknown]
  - Bronchitis [Unknown]
  - Tendon rupture [Unknown]
  - Contusion [Unknown]
  - Oedema peripheral [Unknown]
  - Osteoarthritis [Unknown]
  - Musculoskeletal discomfort [Unknown]
  - Depression [Unknown]
